FAERS Safety Report 8288138-2 (Version None)
Quarter: 2012Q2

REPORT INFORMATION
  Report Type: 
  Country: None (occurrence: None)
  Receive Date: 20120416
  Receipt Date: 20120406
  Transmission Date: 20120825
  Serious: Yes (Hospitalization)
  Sender: FDA-Public Use
  Company Number: NL-MEDIMMUNE-MEDI-0014100

PATIENT
  Sex: Female
  Weight: 6.12 kg

DRUGS (4)
  1. SYNAGIS [Suspect]
     Route: 030
     Dates: start: 20110908, end: 20111103
  2. SYNAGIS [Suspect]
     Route: 030
     Dates: start: 20120406, end: 20120406
  3. SPIRONOLACTONE [Concomitant]
  4. FUROSEMIDE [Concomitant]

REACTIONS (2)
  - FLUID INTAKE REDUCED [None]
  - WEIGHT DECREASED [None]
